FAERS Safety Report 9494367 (Version 3)
Quarter: 2014Q2

REPORT INFORMATION
  Report Type: Spontaneous
  Country: US (occurrence: None)
  Receive Date: 20130828
  Receipt Date: 20140515
  Transmission Date: 20141212
  Serious: Yes (Hospitalization, Other)
  Sender: FDA-Public Use
  Company Number: ADR-2013-01486

PATIENT
  Sex: Female

DRUGS (6)
  1. BACLOFEN [Suspect]
     Indication: PAIN
     Dates: start: 2005, end: 20131014
  2. MARCAINE [Suspect]
  3. PROVIGIL [Suspect]
     Indication: LETHARGY
  4. RITALIN [Suspect]
     Indication: LETHARGY
  5. GABAPENTIN [Suspect]
     Indication: PAIN
  6. CYMBALTA [Suspect]
     Indication: PAIN

REACTIONS (13)
  - Inflammation [None]
  - Mass [None]
  - Paraesthesia [None]
  - Device malfunction [None]
  - Chest discomfort [None]
  - Heart rate abnormal [None]
  - Complex regional pain syndrome [None]
  - Condition aggravated [None]
  - Mental disorder [None]
  - Confusional state [None]
  - Lethargy [None]
  - Inadequate analgesia [None]
  - Amnesia [None]
